FAERS Safety Report 6251442-3 (Version None)
Quarter: 2009Q2

REPORT INFORMATION
  Report Type: 
  Country: None (occurrence: None)
  Receive Date: 20090630
  Receipt Date: 20090618
  Transmission Date: 20091009
  Serious: Yes (Hospitalization)
  Sender: FDA-Public Use
  Company Number: FR-JNJFOC-20090506852

PATIENT
  Sex: Male
  Weight: 59 kg

DRUGS (8)
  1. INTELENCE [Suspect]
     Route: 048
  2. INTELENCE [Suspect]
     Indication: HIV INFECTION
     Route: 048
  3. KALETRA [Suspect]
     Indication: HIV INFECTION
  4. ISOPTIN [Concomitant]
  5. SERETIDE [Concomitant]
  6. URBANYL [Concomitant]
  7. BRICANYL [Concomitant]
  8. ALLOPURINOL [Concomitant]

REACTIONS (8)
  - DEHYDRATION [None]
  - DIARRHOEA [None]
  - HYPERCALCAEMIA [None]
  - HYPERPHOSPHATAEMIA [None]
  - HYPOKALAEMIA [None]
  - MALAISE [None]
  - RENAL FAILURE ACUTE [None]
  - SYNCOPE [None]
